FAERS Safety Report 20808006 (Version 2)
Quarter: 2022Q4

REPORT INFORMATION
  Report Type: Spontaneous
  Country: NL (occurrence: NL)
  Receive Date: 20220510
  Receipt Date: 20221028
  Transmission Date: 20230113
  Serious: Yes (Disabling)
  Sender: FDA-Public Use
  Company Number: None

PATIENT
  Age: 58 Year
  Sex: Female
  Weight: 67 kg

DRUGS (1)
  1. ANASTROZOLE [Suspect]
     Active Substance: ANASTROZOLE
     Indication: Neoplasm malignant
     Dosage: STRENGTH: 1 MG, 1X PER DAY
     Dates: start: 20220327

REACTIONS (13)
  - Weight decreased [Not Recovered/Not Resolved]
  - Nausea [Recovered/Resolved]
  - Dry mouth [Recovering/Resolving]
  - Dry skin [Recovering/Resolving]
  - Anhidrosis [Not Recovered/Not Resolved]
  - Epilepsy [Not Recovered/Not Resolved]
  - Arthralgia [Recovering/Resolving]
  - Insomnia [Not Recovered/Not Resolved]
  - Fatigue [Not Recovered/Not Resolved]
  - Vulvovaginal dryness [Recovering/Resolving]
  - Dehydration [Not Recovered/Not Resolved]
  - Dry eye [Not Recovered/Not Resolved]
  - Disturbance in sexual arousal [Not Recovered/Not Resolved]

NARRATIVE: CASE EVENT DATE: 20220327
